FAERS Safety Report 8307198-3 (Version None)
Quarter: 2012Q2

REPORT INFORMATION
  Report Type: 
  Country: None (occurrence: None)
  Receive Date: 20120424
  Receipt Date: 20120423
  Transmission Date: 20120825
  Serious: Yes (Death, Hospitalization)
  Sender: FDA-Public Use
  Company Number: JP-BAYER-2011-082859

PATIENT
  Age: 71 Year
  Sex: Female
  Weight: 54 kg

DRUGS (10)
  1. NEXAVAR [Suspect]
     Dosage: 200 MG, QD
     Dates: start: 20110915, end: 20111124
  2. AMINOLEBAN EN [Concomitant]
     Dosage: DAILY DOSE 50 G
     Route: 048
     Dates: start: 20110811
  3. ALDACTONE [Concomitant]
     Indication: DIURETIC THERAPY
     Dosage: DAILY DOSE 25 MG
     Route: 048
     Dates: start: 20110811
  4. LIVACT [Concomitant]
     Dosage: DAILY DOSE 12.45 G
     Route: 048
     Dates: start: 20110811
  5. ZANTAC [Concomitant]
     Dosage: DAILY DOSE 300 MG
     Route: 048
     Dates: start: 20110811
  6. URSO 250 [Concomitant]
     Dosage: DAILY DOSE 600 MG
     Route: 048
     Dates: start: 20110811
  7. ALENDRONATE SODIUM [Concomitant]
     Dosage: DAILY DOSE 35 MG
     Route: 048
     Dates: start: 20110811
  8. LASIX [Concomitant]
     Indication: DIURETIC THERAPY
     Dosage: DAILY DOSE 20 MG
     Route: 048
     Dates: start: 20110811
  9. MIYA BM [Concomitant]
     Indication: GASTRITIS
     Dosage: DAILY DOSE 3 G
     Route: 048
     Dates: start: 20110811
  10. NEXAVAR [Suspect]
     Indication: HEPATIC NEOPLASM MALIGNANT
     Dosage: 400 MG, QD
     Route: 048
     Dates: start: 20110818, end: 20110914

REACTIONS (5)
  - HEPATIC FAILURE [None]
  - ASCITES [None]
  - HEPATIC FUNCTION ABNORMAL [None]
  - PALMAR-PLANTAR ERYTHRODYSAESTHESIA SYNDROME [None]
  - PLEURAL EFFUSION [None]
